FAERS Safety Report 4591907-3 (Version None)
Quarter: 2005Q1

REPORT INFORMATION
  Report Type: 
  Country: None (occurrence: None)
  Receive Date: 20050125
  Receipt Date: 20040813
  Transmission Date: 20050727
  Serious: No
  Sender: FDA-Public Use
  Company Number: USA040875497

PATIENT
  Age: 50 Year
  Sex: Female
  Weight: 47 kg

DRUGS (7)
  1. FORTEO [Suspect]
     Indication: OSTEOPOROSIS
     Dosage: 20 UG/1 DAY
     Dates: start: 20040812
  2. PREDNISONE [Concomitant]
  3. AZULFIDINE [Concomitant]
  4. OSCAL (CALCIUM CARBONATE) [Concomitant]
  5. DURAGESIC (FENTANYL) [Concomitant]
  6. FIORINAL [Concomitant]
  7. PHENERGAN [Concomitant]

REACTIONS (3)
  - ASTHENIA [None]
  - BACK PAIN [None]
  - BONE PAIN [None]
